FAERS Safety Report 6038484-8 (Version None)
Quarter: 2009Q1

REPORT INFORMATION
  Report Type: 
  Country: None (occurrence: None)
  Receive Date: 20090115
  Receipt Date: 20080505
  Transmission Date: 20090719
  Serious: No
  Sender: FDA-Public Use
  Company Number: US-KINGPHARMUSA00001-K200800529

PATIENT
  Age: 25 Year
  Sex: Male
  Weight: 58.503 kg

DRUGS (4)
  1. EPIPEN [Suspect]
     Indication: ALLERGY TO ARTHROPOD STING
     Dosage: .3 MG, UNK
     Dates: start: 20080430, end: 20080430
  2. EPIPEN [Suspect]
     Dosage: .3 MG, UNK
     Dates: start: 20080430, end: 20080430
  3. EPIPEN [Suspect]
     Dosage: .3 MG, UNK
     Dates: start: 20080430, end: 20080430
  4. ATENOLOL [Concomitant]
     Indication: HYPERTENSION
     Dosage: 100 MG, QD

REACTIONS (1)
  - DRUG INEFFECTIVE [None]
